FAERS Safety Report 17037071 (Version 4)
Quarter: 2020Q1

REPORT INFORMATION
  Report Type: Spontaneous
  Country: US (occurrence: US)
  Receive Date: 20191115
  Receipt Date: 20200106
  Transmission Date: 20200409
  Serious: Yes (Other)
  Sender: FDA-Public Use
  Company Number: US-PFIZER INC-2019457633

PATIENT
  Age: 37 Year
  Sex: Female
  Weight: 117.9 kg

DRUGS (9)
  1. NIVESTYM [Suspect]
     Active Substance: FILGRASTIM-AAFI
     Indication: NEUTROPENIA
     Dosage: 1 SYRINGE, DAILY [480 MCG PER 0.8ML; ONE WHOLE SYRINGE SUB Q INTO BELLY FOR 3 DAYS]
     Route: 058
     Dates: start: 20191105, end: 20191107
  2. CLARITIN [Concomitant]
     Active Substance: LORATADINE
     Indication: PAIN
     Dosage: 10 MG, DAILY
     Route: 048
     Dates: start: 20191001
  3. COMPAZINE [Concomitant]
     Active Substance: PROCHLORPERAZINE MALEATE
     Indication: NAUSEA
     Dosage: 10 MG, AS NEEDED(10MG; EVERY 8 HOURS AS NEEDED)
  4. NIVESTYM [Suspect]
     Active Substance: FILGRASTIM-AAFI
     Indication: WHITE BLOOD CELL COUNT DECREASED
  5. TUMS ANTACID [Concomitant]
     Indication: DYSPEPSIA
     Dosage: UNK [3 OR 4 AT A TIME]
     Route: 048
     Dates: start: 20191022
  6. PREDNISONE. [Concomitant]
     Active Substance: PREDNISONE
     Dosage: 100 MG, 1X/DAY(FIRST 5 DAYS AFTER CHEMO; 100MG A DAY(2 50MG TABLETS))
  7. LABETALOL [Concomitant]
     Active Substance: LABETALOL\LABETALOL HYDROCHLORIDE
     Indication: BLOOD PRESSURE ABNORMAL
     Dosage: 200 MG, DAILY
  8. ZOFRAN [Concomitant]
     Active Substance: ONDANSETRON HYDROCHLORIDE
     Indication: NAUSEA
     Dosage: 8 MG, AS NEEDED (8MG, ONE EVERY 8 AS NEEDED)
  9. RITUXAN [Concomitant]
     Active Substance: RITUXIMAB
     Dosage: UNK

REACTIONS (6)
  - Hypersensitivity [Unknown]
  - Hypoaesthesia [Recovered/Resolved]
  - Speech disorder [Unknown]
  - Gait disturbance [Unknown]
  - Pain [Unknown]
  - Paraesthesia [Unknown]

NARRATIVE: CASE EVENT DATE: 201911
